FAERS Safety Report 6234100-0 (Version None)
Quarter: 2009Q2

REPORT INFORMATION
  Report Type: 
  Country: None (occurrence: None)
  Receive Date: 20090611
  Receipt Date: 20080529
  Transmission Date: 20091009
  Serious: Yes (Disabling)
  Sender: FDA-Public Use
  Company Number: WAES 0707USA03830

PATIENT
  Age: 71 Year
  Sex: Male

DRUGS (3)
  1. COSOPT [Suspect]
     Indication: GLAUCOMA
     Dosage: 2 DRPS/BID/OPHT
     Route: 047
     Dates: start: 20070523
  2. LUMIGAN [Concomitant]
  3. PRAVASTATIN SODIUM [Concomitant]

REACTIONS (2)
  - DEPRESSION [None]
  - HEART RATE DECREASED [None]
